FAERS Safety Report 8914717 (Version 1)
Quarter: 2012Q4

REPORT INFORMATION
  Report Type: Report from Study
  Country: DE (occurrence: DE)
  Receive Date: 20121119
  Receipt Date: 20121119
  Transmission Date: 20130627
  Serious: Yes (Hospitalization)
  Sender: FDA-Public Use
  Company Number: DE-BAYER-2012-109219

PATIENT
  Age: 54 Year
  Sex: Female
  Weight: 80 kg

DRUGS (5)
  1. SORAFENIB (RAF KINASE INHIBITOR) [Suspect]
     Indication: PERITONEAL CARCINOMA
     Dosage: 200 mg, QD
     Route: 048
     Dates: start: 20120916
  2. ADDITIONAL STUDY MEDICATION [Suspect]
     Indication: PERITONEAL CARCINOMA
     Dosage: 2.6 mg, QD
     Route: 042
     Dates: start: 20120830, end: 20120830
  3. ADDITIONAL STUDY MEDICATION [Suspect]
     Indication: PERITONEAL CARCINOMA
     Dosage: 2.6 mg, QD
     Route: 042
     Dates: start: 20120913, end: 20120913
  4. ADDITIONAL STUDY MEDICATION [Suspect]
     Indication: PERITONEAL CARCINOMA
     Dosage: 2.6 mg, QD
     Route: 042
     Dates: start: 20120927, end: 20120927
  5. ADDITIONAL STUDY MEDICATION [Suspect]
     Indication: PERITONEAL CARCINOMA
     Dosage: 2.6 mg, QD
     Route: 042
     Dates: start: 20121004, end: 20121004

REACTIONS (9)
  - General physical health deterioration [Recovered/Resolved]
  - Candidiasis [None]
  - Hypophagia [None]
  - Dehydration [None]
  - Mucosal inflammation [None]
  - Aspartate aminotransferase increased [None]
  - Alanine aminotransferase increased [None]
  - Gamma-glutamyltransferase increased [None]
  - Blood lactate dehydrogenase increased [None]
